FAERS Safety Report 10085049 (Version 10)
Quarter: 2022Q2

REPORT INFORMATION
  Report Type: Spontaneous
  Country: FR (occurrence: FR)
  Receive Date: 20140417
  Receipt Date: 20220610
  Transmission Date: 20220721
  Serious: Yes (Disabling, Congenital Anomaly, Other)
  Sender: FDA-Public Use
  Company Number: FR-ABBVIE-14P-056-1226867-00

PATIENT
  Sex: Female

DRUGS (1)
  1. VALPROATE SODIUM [Suspect]
     Active Substance: VALPROATE SODIUM
     Indication: Maternal exposure timing unspecified
     Route: 064

REACTIONS (41)
  - Psychomotor retardation [Unknown]
  - Abnormal behaviour [Unknown]
  - Myopia [Unknown]
  - Multiple congenital abnormalities [Unknown]
  - Hypotonia [Not Recovered/Not Resolved]
  - Clumsiness [Not Recovered/Not Resolved]
  - Mobility decreased [Not Recovered/Not Resolved]
  - Speech disorder [Unknown]
  - Ill-defined disorder [Unknown]
  - Autism spectrum disorder [Not Recovered/Not Resolved]
  - Aggression [Not Recovered/Not Resolved]
  - Agitation [Not Recovered/Not Resolved]
  - Weight gain poor [Recovered/Resolved]
  - Intellectual disability [Unknown]
  - Congenital oral malformation [Unknown]
  - Dysmorphism [Unknown]
  - Anomaly of orbit, congenital [Unknown]
  - Strabismus [Unknown]
  - Learning disorder [Unknown]
  - Autism spectrum disorder [Not Recovered/Not Resolved]
  - Foetal anticonvulsant syndrome [Unknown]
  - Dysmorphism [Unknown]
  - Autism spectrum disorder [Unknown]
  - Small for dates baby [Unknown]
  - Head circumference abnormal [Unknown]
  - Congenital eyelid malformation [Unknown]
  - Congenital oral malformation [Unknown]
  - Nipple disorder [Unknown]
  - Cafe au lait spots [Unknown]
  - Congenital hand malformation [Unknown]
  - Deafness neurosensory [Not Recovered/Not Resolved]
  - Ear infection [Not Recovered/Not Resolved]
  - Dyspraxia [Unknown]
  - Disturbance in attention [Not Recovered/Not Resolved]
  - Haemangioma [Not Recovered/Not Resolved]
  - Cryptorchism [Not Recovered/Not Resolved]
  - Phimosis [Not Recovered/Not Resolved]
  - Refraction disorder [Not Recovered/Not Resolved]
  - Arnold-Chiari malformation [Not Recovered/Not Resolved]
  - Gastrooesophageal reflux disease [Not Recovered/Not Resolved]
  - Foetal exposure during pregnancy [Unknown]

NARRATIVE: CASE EVENT DATE: 20030801
